FAERS Safety Report 7671044-1 (Version None)
Quarter: 2011Q3

REPORT INFORMATION
  Report Type: 
  Country: None (occurrence: None)
  Receive Date: 20110809
  Receipt Date: 20110704
  Transmission Date: 20111222
  Serious: No
  Sender: FDA-Public Use
  Company Number: DE-UCBSA-014886

PATIENT
  Sex: Male
  Weight: 3.08 kg

DRUGS (2)
  1. KEPPRA [Suspect]
     Indication: EPILEPSY
     Dosage: 1500X2
     Route: 064
  2. KEPPRA [Suspect]
     Route: 064

REACTIONS (1)
  - MATERNAL EXPOSURE DURING PREGNANCY [None]
